FAERS Safety Report 9716212 (Version 1)
Quarter: 2013Q4

REPORT INFORMATION
  Report Type: Spontaneous
  Country: FR (occurrence: FR)
  Receive Date: 20131127
  Receipt Date: 20131127
  Transmission Date: 20140711
  Serious: Yes (Other)
  Sender: FDA-Public Use
  Company Number: FR-009507513-1311FRA009149

PATIENT
  Sex: Female
  Weight: 100 kg

DRUGS (2)
  1. NEXPLANON [Suspect]
     Dosage: UNK
     Route: 058
     Dates: start: 20130213
  2. PAROXETINE [Concomitant]
     Dosage: 1 DF, QD
     Route: 048
     Dates: start: 201304

REACTIONS (2)
  - Abortion spontaneous [Recovered/Resolved]
  - Unintended pregnancy [Recovered/Resolved]
